FAERS Safety Report 10617702 (Version 1)
Quarter: 2014Q4

REPORT INFORMATION
  Report Type: Report from Study
  Country: BR (occurrence: BR)
  Receive Date: 20141201
  Receipt Date: 20141201
  Transmission Date: 20150529
  Serious: Yes (Hospitalization, Other)
  Sender: FDA-Public Use
  Company Number: ALCN2014BR006639

PATIENT
  Sex: Female
  Weight: 68 kg

DRUGS (1)
  1. DUOTRAV [BAC] [Suspect]
     Active Substance: TIMOLOL\TRAVOPROST
     Indication: CATARACT
     Dosage: 1 UNK, QHS
     Route: 047

REACTIONS (2)
  - Gait disturbance [Unknown]
  - Cataract [Unknown]
